FAERS Safety Report 12315103 (Version 1)
Quarter: 2016Q2

REPORT INFORMATION
  Report Type: Spontaneous
  Country: US (occurrence: US)
  Receive Date: 20160428
  Receipt Date: 20160428
  Transmission Date: 20160815
  Serious: No
  Sender: FDA-Public Use
  Company Number: US-MALLINCKRODT-T201600448

PATIENT
  Sex: Male

DRUGS (1)
  1. METHYLIN [Suspect]
     Active Substance: METHYLPHENIDATE HYDROCHLORIDE
     Indication: ATTENTION DEFICIT/HYPERACTIVITY DISORDER
     Dosage: UNK
     Route: 065

REACTIONS (6)
  - Developmental delay [Unknown]
  - Growth retardation [Unknown]
  - Social problem [Unknown]
  - Bone disorder [Unknown]
  - Anxiety [Unknown]
  - Mood swings [Unknown]
